FAERS Safety Report 16821734 (Version 2)
Quarter: 2019Q4

REPORT INFORMATION
  Report Type: Spontaneous
  Country: US (occurrence: US)
  Receive Date: 20190918
  Receipt Date: 20191113
  Transmission Date: 20200122
  Serious: Yes (Other)
  Sender: FDA-Public Use
  Company Number: US-BAYER-2019-170552

PATIENT
  Age: 27 Year
  Sex: Female

DRUGS (1)
  1. KYLEENA [Suspect]
     Active Substance: LEVONORGESTREL
     Indication: CONTRACEPTION
     Dosage: 17.5 MCG/24HR, CONT
     Route: 015
     Dates: start: 2017, end: 20191021

REACTIONS (4)
  - Genital haemorrhage [None]
  - Medical device discomfort [None]
  - Device expulsion [None]
  - Abdominal pain [None]

NARRATIVE: CASE EVENT DATE: 20190813
